FAERS Safety Report 16793282 (Version 1)
Quarter: 2019Q3

REPORT INFORMATION
  Report Type: Spontaneous
  Country: US (occurrence: US)
  Receive Date: 20190911
  Receipt Date: 20190911
  Transmission Date: 20191005
  Serious: No
  Sender: FDA-Public Use
  Company Number: US-MACLEODS PHARMACEUTICALS US LTD-MAC2019022819

PATIENT

DRUGS (1)
  1. RIZATRIPTAN BENZOATE 10 MG DISINTEGRATING TABLET [Suspect]
     Active Substance: RIZATRIPTAN BENZOATE
     Indication: MIGRAINE
     Dosage: 1 DOSAGE FORM, QD
     Route: 065

REACTIONS (3)
  - Product substitution issue [Unknown]
  - Migraine [Recovered/Resolved]
  - Drug ineffective [Unknown]
